FAERS Safety Report 4786898-6 (Version None)
Quarter: 2005Q3

REPORT INFORMATION
  Report Type: 
  Country: None (occurrence: None)
  Receive Date: 20050930
  Receipt Date: 20050914
  Transmission Date: 20060218
  Serious: Yes (Death)
  Sender: FDA-Public Use
  Company Number: 2005S1008447

PATIENT
  Age: 78 Year
  Sex: Female

DRUGS (1)
  1. CLOZAPINE [Suspect]
     Indication: SCHIZOPHRENIA
     Dosage: 300 MG;HS; PO
     Route: 048
     Dates: start: 20050120, end: 20050801

REACTIONS (1)
  - PANCREATIC CARCINOMA [None]
